FAERS Safety Report 10867118 (Version 1)
Quarter: 2015Q1

REPORT INFORMATION
  Report Type: Spontaneous
  Country: FR (occurrence: FR)
  Receive Date: 20150225
  Receipt Date: 20150225
  Transmission Date: 20150721
  Serious: Yes (Other)
  Sender: FDA-Public Use
  Company Number: FR-AMGEN-FRASP2015015715

PATIENT
  Age: 92 Year
  Sex: Female

DRUGS (3)
  1. CALCIUM [Concomitant]
     Active Substance: CALCIUM
     Dosage: UNK
  2. VITAMIN D                          /00107901/ [Concomitant]
     Active Substance: ERGOCALCIFEROL
     Dosage: UNK
  3. PROLIA [Suspect]
     Active Substance: DENOSUMAB
     Indication: OSTEOPOROSIS POSTMENOPAUSAL
     Dosage: UNK UNK, Q9MO
     Route: 065
     Dates: start: 20140520

REACTIONS (8)
  - Haematoma [Unknown]
  - Cystitis [Unknown]
  - Ear haemorrhage [Unknown]
  - Blood pressure abnormal [Unknown]
  - Cerebral haematoma [Unknown]
  - Pyrexia [Recovered/Resolved]
  - Bedridden [Unknown]
  - Off label use [Unknown]

NARRATIVE: CASE EVENT DATE: 201406
